FAERS Safety Report 5663257-5 (Version None)
Quarter: 2008Q1

REPORT INFORMATION
  Report Type: 
  Country: None (occurrence: None)
  Receive Date: 20080313
  Receipt Date: 20080222
  Transmission Date: 20080703
  Serious: Yes (Other)
  Sender: FDA-Public Use
  Company Number: DE-PFIZER INC-2008021191

PATIENT
  Sex: Male

DRUGS (1)
  1. SUTENT [Suspect]
     Indication: METASTATIC RENAL CELL CARCINOMA
     Route: 048

REACTIONS (2)
  - CARDIOMYOPATHY [None]
  - ELECTROCARDIOGRAM ST SEGMENT DEPRESSION [None]
